FAERS Safety Report 13777599 (Version 1)
Quarter: 2017Q3

REPORT INFORMATION
  Report Type: Spontaneous
  Country: FR (occurrence: FR)
  Receive Date: 20170721
  Receipt Date: 20170721
  Transmission Date: 20171127
  Serious: Yes (Hospitalization, Other)
  Sender: FDA-Public Use
  Company Number: FR-BAXTER-2017BAX027905

PATIENT
  Age: 77 Year
  Sex: Female

DRUGS (9)
  1. ENDOXAN 1000 MG, POUDRE POUR SOLUTION INJECTABLE [Suspect]
     Active Substance: CYCLOPHOSPHAMIDE
     Dosage: ADJUVANT CHEMOTHERAPY, FEC PROTOCOL, COURSE 2
     Route: 042
     Dates: start: 2012
  2. FLUOROURACIL. [Suspect]
     Active Substance: FLUOROURACIL
     Indication: INVASIVE DUCTAL BREAST CARCINOMA
     Dosage: ADJUVANT CHEMOTHERAPY, FEC PROTOCOL, COURSE 1
     Route: 042
     Dates: start: 20121018
  3. ENDOXAN 1000 MG, POUDRE POUR SOLUTION INJECTABLE [Suspect]
     Active Substance: CYCLOPHOSPHAMIDE
     Dosage: ADJUVANT CHEMOTHERAPY, FEC PROTOCOL, COURSE 3
     Route: 042
     Dates: start: 20121130, end: 20121130
  4. EPIRUBICIN [Suspect]
     Active Substance: EPIRUBICIN
     Dosage: ADJUVANT CHEMOTHERAPY, FEC PROTOCOL, COURSE 3
     Route: 042
     Dates: start: 20121130, end: 20121130
  5. ENDOXAN 1000 MG, POUDRE POUR SOLUTION INJECTABLE [Suspect]
     Active Substance: CYCLOPHOSPHAMIDE
     Indication: INVASIVE DUCTAL BREAST CARCINOMA
     Dosage: ADJUVANT CHEMOTHERAPY, FEC PROTOCOL, COURSE 1
     Route: 042
     Dates: start: 20121018
  6. FLUOROURACIL. [Suspect]
     Active Substance: FLUOROURACIL
     Dosage: ADJUVANT CHEMOTHERAPY, FEC PROTOCOL, COURSE 2
     Route: 042
     Dates: start: 2012
  7. EPIRUBICIN [Suspect]
     Active Substance: EPIRUBICIN
     Indication: INVASIVE DUCTAL BREAST CARCINOMA
     Dosage: ADJUVANT CHEMOTHERAPY, FEC PROTOCOL, COURSE 1
     Route: 042
     Dates: start: 20121018
  8. EPIRUBICIN [Suspect]
     Active Substance: EPIRUBICIN
     Dosage: ADJUVANT CHEMOTHERAPY, FEC PROTOCOL, COURSE 2
     Route: 042
     Dates: start: 2012
  9. FLUOROURACIL. [Suspect]
     Active Substance: FLUOROURACIL
     Dosage: ADJUVANT CHEMOTHERAPY, FEC PROTOCOL, COURSE 3
     Route: 042
     Dates: start: 20121130, end: 20121130

REACTIONS (3)
  - Aphthous ulcer [Recovering/Resolving]
  - General physical condition abnormal [Unknown]
  - Febrile neutropenia [Recovered/Resolved]

NARRATIVE: CASE EVENT DATE: 20121210
